FAERS Safety Report 17224543 (Version 1)
Quarter: 2020Q1

REPORT INFORMATION
  Report Type: Report from Study
  Country: IN (occurrence: IN)
  Receive Date: 20200102
  Receipt Date: 20200102
  Transmission Date: 20200409
  Serious: Yes (Death)
  Sender: FDA-Public Use
  Company Number: PHHY2016IN131111

PATIENT
  Age: 62 Year
  Sex: Male

DRUGS (4)
  1. GLIVEC [Suspect]
     Active Substance: IMATINIB MESYLATE
     Indication: CHRONIC MYELOID LEUKAEMIA
     Dosage: 400 MG, UNK
     Route: 065
  2. GLIVEC [Suspect]
     Active Substance: IMATINIB MESYLATE
     Dosage: 800 MG, UNK
     Route: 065
  3. GLIVEC [Suspect]
     Active Substance: IMATINIB MESYLATE
     Dosage: 600 MG, UNK
     Route: 065
  4. GLIVEC [Suspect]
     Active Substance: IMATINIB MESYLATE
     Dosage: 600 MG, UNK
     Route: 065

REACTIONS (4)
  - T-lymphocyte count increased [Unknown]
  - Death [Fatal]
  - Chromosome analysis abnormal [Unknown]
  - Therapy non-responder [Unknown]

NARRATIVE: CASE EVENT DATE: 20191224
